FAERS Safety Report 5664621-0 (Version None)
Quarter: 2008Q1

REPORT INFORMATION
  Report Type: 
  Country: None (occurrence: None)
  Receive Date: 20080314
  Receipt Date: 20080303
  Transmission Date: 20080703
  Serious: Yes (Hospitalization)
  Sender: FDA-Public Use
  Company Number: JP-NOVOPROD-271680

PATIENT
  Sex: Female
  Weight: 38 kg

DRUGS (8)
  1. PENFILL 30R CHU [Suspect]
     Indication: TYPE 2 DIABETES MELLITUS
     Dosage: 18 IU, QD
     Route: 058
     Dates: start: 20070707
  2. TAKEPRON [Concomitant]
     Indication: ULCER
     Dosage: 15 MG, QD
     Route: 048
     Dates: start: 20071009, end: 20080107
  3. BUFFERIN [Concomitant]
     Indication: PROPHYLAXIS
     Dosage: 81 MG, QD
     Route: 048
     Dates: start: 20070601, end: 20070914
  4. LASIX [Concomitant]
     Indication: POLYURIA
     Dosage: 10 MG, QD
     Route: 048
     Dates: start: 20071009, end: 20080121
  5. SPIRONOLACTONE [Concomitant]
     Dosage: 25 MG, QD
     Route: 048
     Dates: start: 20071009, end: 20080121
  6. MUCOSTA [Concomitant]
     Indication: ULCER
     Dosage: 300 MG, QD
     Route: 048
     Dates: start: 20071009, end: 20080121
  7. MUCOSTA [Concomitant]
     Dates: start: 20080212
  8. FERROMIA                           /00023516/ [Concomitant]
     Indication: ANAEMIA
     Dosage: 1.2 G, QD
     Route: 048
     Dates: start: 20071018, end: 20080121

REACTIONS (5)
  - GASTRIC ULCER [None]
  - NEUTROPHIL COUNT DECREASED [None]
  - UPPER RESPIRATORY TRACT INFECTION [None]
  - URINARY TRACT INFECTION [None]
  - WHITE BLOOD CELL COUNT DECREASED [None]
